FAERS Safety Report 8914987 (Version 1)
Quarter: 2012Q4

REPORT INFORMATION
  Report Type: 
  Country: US (occurrence: US)
  Receive Date: 20121116
  Receipt Date: 20121116
  Transmission Date: 20130627
  Serious: Yes (Hospitalization, Disabling, Other)
  Sender: FDA-Public Use
  Company Number: US-009507513-1201USA00879

PATIENT

DRUGS (5)
  1. FOSAMAX [Suspect]
     Indication: OSTEOPOROSIS
     Dosage: 70 mg, QW
     Route: 048
     Dates: start: 200606, end: 201001
  2. DILTIAZEM [Concomitant]
     Indication: HYPERTENSION
  3. COZAAR [Concomitant]
     Route: 048
  4. MK-0152 [Concomitant]
  5. EVISTA [Concomitant]

REACTIONS (27)
  - Femur fracture [Recovering/Resolving]
  - Humerus fracture [Recovered/Resolved]
  - Urinary tract infection [Unknown]
  - Bone cyst [Unknown]
  - Anaemia [Unknown]
  - Tendon rupture [Unknown]
  - Cystitis [Unknown]
  - Osteoarthritis [Unknown]
  - Hypokalaemia [Unknown]
  - Open reduction of fracture [Unknown]
  - Gastritis [Unknown]
  - Vitamin D deficiency [Unknown]
  - Diabetes mellitus [Unknown]
  - Spondylolisthesis [Unknown]
  - Intervertebral disc protrusion [Unknown]
  - Vertigo positional [Unknown]
  - Chronic sinusitis [Unknown]
  - Sinus polyp [Unknown]
  - Chronic sinusitis [Unknown]
  - Chronic sinusitis [Unknown]
  - Nasal polyps [Unknown]
  - Nasal turbinate hypertrophy [Unknown]
  - Chronic sinusitis [Unknown]
  - Rhinitis [Unknown]
  - Nasal congestion [Unknown]
  - Cerumen impaction [Recovered/Resolved]
  - Headache [Unknown]
